FAERS Safety Report 9185924 (Version 1)
Quarter: 2013Q1

REPORT INFORMATION
  Report Type: Spontaneous
  Country: ES (occurrence: ES)
  Receive Date: 20130325
  Receipt Date: 20130325
  Transmission Date: 20140127
  Serious: Yes (Hospitalization)
  Sender: FDA-Public Use
  Company Number: ES-ELI_LILLY_AND_COMPANY-ES201303007496

PATIENT
  Sex: Female

DRUGS (5)
  1. FORSTEO [Suspect]
     Indication: OSTEOPOROSIS
     Dosage: 20 UG, QD
     Route: 058
     Dates: start: 20111028, end: 20120305
  2. OMEPRAZOLE [Concomitant]
     Indication: GASTRIC DISORDER
     Dosage: 1 DF, QD
     Route: 048
  3. ARCOXIA [Concomitant]
     Indication: PAIN
     Dosage: UNK, PRN
     Route: 048
  4. IBUPROFENO [Concomitant]
     Indication: PAIN
     Dosage: UNK, PRN
     Route: 048
  5. ENANTYUM [Concomitant]
     Indication: PAIN
     Dosage: UNK, PRN
     Route: 048

REACTIONS (1)
  - Device related infection [Recovering/Resolving]
